FAERS Safety Report 4762545-4 (Version None)
Quarter: 2005Q3

REPORT INFORMATION
  Report Type: 
  Country: None (occurrence: None)
  Receive Date: 20050902
  Receipt Date: 20050228
  Transmission Date: 20060218
  Serious: Yes (Other)
  Sender: FDA-Public Use
  Company Number: 2005S1000850

PATIENT
  Age: 49 Year
  Sex: Male
  Weight: 81.6475 kg

DRUGS (6)
  1. FENTANYL [Suspect]
     Indication: INTERVERTEBRAL DISC DEGENERATION
     Dosage: 75 MCG;Q3D;TDER
     Dates: start: 20050201
  2. FENTANYL [Suspect]
     Indication: OSTEOARTHRITIS
     Dosage: 75 MCG;Q3D;TDER
     Dates: start: 20050201
  3. PARACETAMOL/HYDROCODONE [Concomitant]
  4. BITARTRATE [Concomitant]
  5. MUSCLE RELAXANTS [Concomitant]
  6. LISINOPRIL [Concomitant]

REACTIONS (5)
  - APPLICATION SITE ERYTHEMA [None]
  - APPLICATION SITE PRURITUS [None]
  - DRUG DEPENDENCE [None]
  - DRUG INEFFECTIVE [None]
  - DRUG WITHDRAWAL SYNDROME [None]
